FAERS Safety Report 18034986 (Version 1)
Quarter: 2020Q3

REPORT INFORMATION
  Report Type: Spontaneous
  Country: US (occurrence: US)
  Receive Date: 20200716
  Receipt Date: 20200716
  Transmission Date: 20201103
  Serious: No
  Sender: FDA-Public Use
  Company Number: None

PATIENT
  Age: 81 Year
  Sex: Female
  Weight: 119.5 kg

DRUGS (18)
  1. TYLENOL [Concomitant]
     Active Substance: ACETAMINOPHEN
  2. LIPITOR [Concomitant]
     Active Substance: ATORVASTATIN CALCIUM
  3. PRENATAL VITAMIN [Concomitant]
     Active Substance: VITAMINS
  4. VERZENIO [Suspect]
     Active Substance: ABEMACICLIB
     Indication: BREAST CANCER
     Route: 048
     Dates: start: 20200623, end: 20200716
  5. VITAMIN D [Concomitant]
     Active Substance: VITAMIN D NOS
  6. EXEMESTANE. [Concomitant]
     Active Substance: EXEMESTANE
  7. LANTANOPROST?TIMOLOL [Concomitant]
  8. POTASSIUM CL [Concomitant]
     Active Substance: POTASSIUM CHLORIDE
  9. ZOFRAN [Concomitant]
     Active Substance: ONDANSETRON HYDROCHLORIDE
  10. NYSTATIN TOPICAL [Concomitant]
  11. MILK OF MAGNESIA [Concomitant]
     Active Substance: MAGNESIUM HYDROXIDE
  12. BRIMONIDINE [Concomitant]
     Active Substance: BRIMONIDINE TARTRATE
  13. CULTURELLE [Concomitant]
     Active Substance: LACTOBACILLUS RHAMNOSUS
  14. TRIAMCINOLONE [Concomitant]
     Active Substance: TRIAMCINOLONE
  15. ALLOPURINOL. [Concomitant]
     Active Substance: ALLOPURINOL
  16. BENICAR [Concomitant]
     Active Substance: OLMESARTAN MEDOXOMIL
  17. FUROSEMIDE. [Concomitant]
     Active Substance: FUROSEMIDE
  18. TIMOLOL. [Concomitant]
     Active Substance: TIMOLOL

REACTIONS (1)
  - Acute kidney injury [None]

NARRATIVE: CASE EVENT DATE: 20200716
